FAERS Safety Report 14872229 (Version 1)
Quarter: 2018Q2

REPORT INFORMATION
  Report Type: Spontaneous
  Country: US (occurrence: US)
  Receive Date: 20180509
  Receipt Date: 20180509
  Transmission Date: 20180711
  Serious: Yes (Other)
  Sender: FDA-Public Use
  Company Number: US-SA-2018SA132249

PATIENT
  Sex: Female

DRUGS (1)
  1. DULCOLAX (BISACODYL) [Suspect]
     Active Substance: BISACODYL
     Route: 065

REACTIONS (8)
  - Abdominal pain upper [Unknown]
  - Drug intolerance [Unknown]
  - Pain [Unknown]
  - Nausea [Unknown]
  - Cerebral haemorrhage [Unknown]
  - Incorrect route of drug administration [Unknown]
  - Cerebrovascular accident [Unknown]
  - Vomiting [Unknown]
